FAERS Safety Report 7554620-6 (Version None)
Quarter: 2011Q2

REPORT INFORMATION
  Report Type: 
  Country: None (occurrence: None)
  Receive Date: 20110617
  Receipt Date: 20110604
  Transmission Date: 20111010
  Serious: Yes (Other)
  Sender: FDA-Public Use
  Company Number: DE-JNJFOC-20110603854

PATIENT
  Age: 38 Year
  Sex: Female

DRUGS (1)
  1. REMICADE [Suspect]
     Indication: PYODERMA GANGRENOSUM
     Route: 042
     Dates: start: 20100701

REACTIONS (3)
  - TACHYCARDIA [None]
  - ANAPHYLACTIC REACTION [None]
  - URTICARIA [None]
